FAERS Safety Report 10222992 (Version 1)
Quarter: 2014Q2

REPORT INFORMATION
  Report Type: Report from Study
  Country: AT (occurrence: AT)
  Receive Date: 20140607
  Receipt Date: 20140607
  Transmission Date: 20141212
  Serious: Yes (Other)
  Sender: FDA-Public Use
  Company Number: PHHY2014AT069200

PATIENT
  Sex: 0

DRUGS (1)
  1. GLIVEC [Suspect]
     Dosage: 400 MG, UNK

REACTIONS (5)
  - Performance status decreased [Unknown]
  - Eyelid oedema [Unknown]
  - Haematoma [Unknown]
  - Thrombocytosis [Unknown]
  - Night sweats [Unknown]
